FAERS Safety Report 8320788-7 (Version None)
Quarter: 2012Q2

REPORT INFORMATION
  Report Type: 
  Country: None (occurrence: None)
  Receive Date: 20120430
  Receipt Date: 20120421
  Transmission Date: 20120825
  Serious: Yes (Other)
  Sender: FDA-Public Use
  Company Number: PHHY2012BR034702

PATIENT
  Sex: Female

DRUGS (1)
  1. FORMOTEROL FUMARATE [Suspect]

REACTIONS (5)
  - MITRAL VALVE DISEASE [None]
  - HYPERSENSITIVITY [None]
  - PULMONARY HYPERTENSION [None]
  - HYPERTENSION [None]
  - BLOOD CHOLESTEROL INCREASED [None]
